FAERS Safety Report 6815376-5 (Version None)
Quarter: 2010Q3

REPORT INFORMATION
  Report Type: 
  Country: None (occurrence: None)
  Receive Date: 20100702
  Receipt Date: 20100629
  Transmission Date: 20110219
  Serious: Yes (Hospitalization)
  Sender: FDA-Public Use
  Company Number: GXKR2010DE07155

PATIENT
  Age: 60 Year
  Sex: Male
  Weight: 85 kg

DRUGS (3)
  1. BICALUTAMIDE (NGX) [Suspect]
     Indication: PROSTATE CANCER
     Dosage: 150 MG, QD
     Route: 048
     Dates: start: 20091201, end: 20100601
  2. METOPROLOL (NGX) [Concomitant]
     Indication: SUPRAVENTRICULAR TACHYCARDIA
     Dosage: 47.5 MG, QD
     Route: 048
     Dates: start: 20090601
  3. RISPERDAL [Concomitant]
     Indication: PSYCHOTIC DISORDER
     Dosage: 3 MG, BID
     Route: 048
     Dates: start: 20100501

REACTIONS (5)
  - ACUTE PSYCHOSIS [None]
  - DYSPNOEA [None]
  - EXERCISE TOLERANCE DECREASED [None]
  - SCHIZOPHRENIA [None]
  - SOMNOLENCE [None]
